FAERS Safety Report 5869476-7 (Version None)
Quarter: 2008Q3

REPORT INFORMATION
  Report Type: 
  Country: None (occurrence: None)
  Receive Date: 20080828
  Receipt Date: 20080819
  Transmission Date: 20090109
  Serious: Yes (Hospitalization)
  Sender: FDA-Public Use
  Company Number: BEN-2008-011

PATIENT
  Age: 56 Year
  Sex: Female

DRUGS (8)
  1. MERBENTYL (DICYCLOVERINE HYDROCHLORIDE) [Suspect]
     Dosage: ORAL
     Route: 048
  2. ARAVA [Suspect]
     Indication: RHEUMATOID ARTHRITIS
  3. GAVISCON [Concomitant]
  4. PANTOPRAZOLE [Concomitant]
  5. PARACETAMOL OR CODIDRAMOL [Concomitant]
  6. DICLOFENAC [Concomitant]
  7. HYOSCINE [Concomitant]
  8. TRAMADOL HCL [Concomitant]

REACTIONS (2)
  - NEUTROPENIA [None]
  - NEUTROPHIL COUNT DECREASED [None]
